FAERS Safety Report 23032217 (Version 1)
Quarter: 2023Q4

REPORT INFORMATION
  Report Type: Spontaneous
  Country: GB (occurrence: GB)
  Receive Date: 20231005
  Receipt Date: 20231005
  Transmission Date: 20240110
  Serious: Yes (Hospitalization, Other)
  Sender: FDA-Public Use
  Company Number: None

PATIENT
  Age: 51 Year
  Sex: Male
  Weight: 125 kg

DRUGS (15)
  1. AMOXICILLIN\CLAVULANATE POTASSIUM [Suspect]
     Active Substance: AMOXICILLIN\CLAVULANATE POTASSIUM
     Indication: Urinary tract disorder
     Dosage: 625 MG, TID (500MG/125MG)
     Route: 048
     Dates: start: 20160419
  2. AMITRIPTYLINE [Concomitant]
     Active Substance: AMITRIPTYLINE
     Indication: Product used for unknown indication
     Dosage: 20 MG, BID
     Route: 048
     Dates: start: 20160915
  3. AMLODIPINE [Concomitant]
     Active Substance: AMLODIPINE BESYLATE
     Indication: Essential hypertension
     Route: 048
     Dates: start: 20161017
  4. AMOXICILLIN [Concomitant]
     Active Substance: AMOXICILLIN
     Indication: Prophylaxis urinary tract infection
     Dosage: AT NIGHT FOR 3 MONTHS THEN SWITCH TO NITROFURANTOIN.
     Route: 048
     Dates: start: 20160915
  5. CITALOPRAM [Concomitant]
     Active Substance: CITALOPRAM HYDROBROMIDE
     Indication: Affective disorder
     Dosage: 10 MG, QD
     Route: 048
     Dates: start: 20160711
  6. BECLOMETHASONE DIPROPIONATE [Concomitant]
     Active Substance: BECLOMETHASONE DIPROPIONATE
     Indication: Product used for unknown indication
     Dosage: UNK
     Route: 065
  7. CYCLIZINE [Concomitant]
     Active Substance: CYCLIZINE
     Indication: Vertigo
     Dosage: 50 MG (THREE TIMES DAILY WHEN REQUIRED.)
     Route: 048
     Dates: start: 20161020
  8. DIHYDROCODEINE [Concomitant]
     Active Substance: DIHYDROCODEINE
     Indication: Product used for unknown indication
     Dosage: 1-2 FOUR TIMES A DAY WHEN REQUIRED.
     Route: 048
     Dates: start: 20160818
  9. GABAPENTIN [Concomitant]
     Active Substance: GABAPENTIN
     Indication: Pain
     Dosage: 1-2 THREE TIMES DAILY.
     Route: 048
     Dates: start: 20160823
  10. NITROFURANTOIN [Concomitant]
     Active Substance: NITROFURANTOIN
     Indication: Product used for unknown indication
     Dosage: AT NIGHT.
     Route: 048
     Dates: start: 20161017
  11. MORPHINE SULFATE [Concomitant]
     Active Substance: MORPHINE SULFATE
     Indication: Product used for unknown indication
     Dosage: 2.5 ML (2.5ML 4 HOURLY WHEN REQUIRED.0
     Route: 048
     Dates: start: 20161221
  12. ACETAMINOPHEN [Concomitant]
     Active Substance: ACETAMINOPHEN
     Indication: Product used for unknown indication
     Dosage: 1 TO 2 TABLETS UP TO FOUR TIMES DAILY AS REQUIRED.
     Route: 048
     Dates: start: 20160815
  13. QVAR [Concomitant]
     Active Substance: BECLOMETHASONE DIPROPIONATE
     Indication: Product used for unknown indication
     Dosage: 1 DF, BID
     Route: 055
     Dates: start: 20160915
  14. ALBUTEROL [Concomitant]
     Active Substance: ALBUTEROL
     Indication: Product used for unknown indication
     Dosage: 200 UG (100MICROGRAMS/DOSE INHALER CFC FREE. )
     Route: 055
     Dates: start: 20161004
  15. TEGRETOL [Concomitant]
     Active Substance: CARBAMAZEPINE
     Indication: Epilepsy
     Dosage: 400 MG, QD
     Route: 048
     Dates: start: 20160129

REACTIONS (5)
  - Skin exfoliation [Recovered/Resolved]
  - Rash papular [Recovered/Resolved]
  - Dyspnoea [Recovered/Resolved]
  - Periorbital swelling [Recovered/Resolved]
  - Pruritus [Recovered/Resolved]

NARRATIVE: CASE EVENT DATE: 20160424
